FAERS Safety Report 7633799-1 (Version None)
Quarter: 2011Q3

REPORT INFORMATION
  Report Type: 
  Country: None (occurrence: None)
  Receive Date: 20110725
  Receipt Date: 20110718
  Transmission Date: 20111222
  Serious: Yes (Death, Life-Threatening)
  Sender: FDA-Public Use
  Company Number: US-MERCK-1107USA02279

PATIENT
  Age: 43 Year
  Sex: Male

DRUGS (3)
  1. ISENTRESS [Suspect]
     Route: 048
  2. NORVIR [Concomitant]
     Route: 065
  3. REYATAZ [Concomitant]
     Route: 065

REACTIONS (1)
  - CARDIAC DISORDER [None]
